FAERS Safety Report 8612775 (Version 5)
Quarter: 2012Q4

REPORT INFORMATION
  Report Type: 
  Country: JP (occurrence: JP)
  Receive Date: 20120530
  Receipt Date: 20121210
  Transmission Date: 20130627
  Serious: Yes (Hospitalization, Other)
  Sender: FDA-Public Use
  Company Number: JP-009507513-2012SP025614

PATIENT
  Age: 65 Year
  Sex: Male
  Weight: 67 kg

DRUGS (17)
  1. PEGINTRON [Suspect]
     Indication: CHRONIC HEPATITIS C
     Dosage: 1.5mcg/kg/week
     Route: 058
     Dates: start: 20120216, end: 20120726
  2. REBETOL [Suspect]
     Indication: CHRONIC HEPATITIS C
     Dosage: 800 mg, QD
     Route: 048
     Dates: start: 20120216, end: 20120315
  3. REBETOL [Suspect]
     Dosage: 600 mg, QD
     Route: 048
     Dates: start: 20120316, end: 20120404
  4. REBETOL [Suspect]
     Dosage: 400 mg, QD
     Route: 048
     Dates: start: 20120405, end: 20120801
  5. TELAVIC [Suspect]
     Indication: CHRONIC HEPATITIS C
     Dosage: 2250 mg, qd
     Route: 048
     Dates: start: 20120216, end: 20120426
  6. AMLODIPINE [Concomitant]
     Indication: HYPERTENSION
     Dosage: 5 mg, qd
     Route: 048
  7. MAINHEART [Concomitant]
     Indication: HYPERTENSION
     Dosage: 5 mg, qd
     Route: 048
  8. GLIMEPIRIDE [Concomitant]
     Indication: DIABETES MELLITUS
     Dosage: 3 mg, qd
     Route: 048
     Dates: end: 20120614
  9. GLIMEPIRIDE [Concomitant]
     Dosage: 1 mg, qd
     Route: 048
     Dates: start: 20120615, end: 20120620
  10. GLIMEPIRIDE [Concomitant]
     Dosage: 0.5 mg, qd
     Route: 048
     Dates: start: 20120621, end: 20120628
  11. NELBIS [Concomitant]
     Indication: DIABETES MELLITUS
     Dosage: 250 mg, qd
     Route: 048
  12. TAKEPRON [Concomitant]
     Indication: PROPHYLAXIS
     Dosage: UNK
     Route: 048
     Dates: start: 20120220, end: 20120308
  13. PARIET [Concomitant]
     Dosage: 10 mg, qd
     Route: 048
     Dates: start: 20120426, end: 20120525
  14. JANUVIA TABLETS 50MG [Concomitant]
     Indication: DIABETES MELLITUS
     Dosage: 50 mg, qd
     Route: 048
     Dates: start: 20120629, end: 20120705
  15. RIKKUNSHI-TO [Concomitant]
     Indication: PROPHYLAXIS
     Dosage: 7.5 g, qd
     Route: 048
     Dates: end: 20120621
  16. RIKKUNSHI-TO [Concomitant]
     Indication: PROPHYLAXIS
     Dosage: 7.5 g, qd
     Route: 048
     Dates: start: 20120308
  17. HUMULIN N [Concomitant]
     Indication: DIABETES MELLITUS
     Dosage: UNK
     Route: 058
     Dates: start: 20120510, end: 20120523

REACTIONS (4)
  - Skin disorder [Unknown]
  - Drug eruption [Recovering/Resolving]
  - White blood cell count decreased [Not Recovered/Not Resolved]
  - White blood cell count decreased [Recovering/Resolving]
